FAERS Safety Report 15904952 (Version 1)
Quarter: 2019Q1

REPORT INFORMATION
  Report Type: Other
  Country: AU (occurrence: AU)
  Receive Date: 20190204
  Receipt Date: 20190204
  Transmission Date: 20190417
  Serious: Yes (Other)
  Sender: FDA-Public Use
  Company Number: AU-APPCO PHARMA LLC-2062108

PATIENT
  Age: 90 Year
  Sex: Female

DRUGS (7)
  1. POTASSIUM [Concomitant]
     Active Substance: POTASSIUM
     Route: 065
  2. BISOPROLOL FUMARATE. [Suspect]
     Active Substance: BISOPROLOL FUMARATE
     Route: 065
  3. FLUINDIONE [Concomitant]
     Active Substance: FLUINDIONE
     Route: 065
  4. METRONIDAZOLE. [Suspect]
     Active Substance: METRONIDAZOLE
     Indication: PRODUCT USED FOR UNKNOWN INDICATION
     Route: 065
  5. CEFTRIAXONE. [Suspect]
     Active Substance: CEFTRIAXONE
     Route: 065
  6. PAROXETINE. [Suspect]
     Active Substance: PAROXETINE
     Route: 065
  7. HEPARIN [Suspect]
     Active Substance: HEPARIN SODIUM
     Route: 065

REACTIONS (1)
  - Hepatitis [Recovered/Resolved]
